FAERS Safety Report 7194296-3 (Version None)
Quarter: 2010Q4

REPORT INFORMATION
  Report Type: 
  Country: None (occurrence: None)
  Receive Date: 20101223
  Receipt Date: 20101213
  Transmission Date: 20110411
  Serious: Yes (Hospitalization)
  Sender: FDA-Public Use
  Company Number: PHBS2000JP05837

PATIENT
  Sex: Female
  Weight: 58 kg

DRUGS (4)
  1. TEGRETOL [Suspect]
     Indication: POST HERPETIC NEURALGIA
     Dosage: 100 TO 400 MG
     Route: 048
     Dates: start: 19990913, end: 19991025
  2. LOXONIN [Concomitant]
     Route: 065
     Dates: start: 19990827, end: 19991025
  3. SELBEX [Concomitant]
     Route: 065
     Dates: start: 19990827, end: 19991021
  4. METHYCOBAL [Concomitant]
     Dates: start: 19990903, end: 19991021

REACTIONS (11)
  - DRUG HYPERSENSITIVITY [None]
  - ERYTHEMA [None]
  - HAEMOLYTIC ANAEMIA [None]
  - HEPATIC ENZYME INCREASED [None]
  - HEPATIC FUNCTION ABNORMAL [None]
  - KETOACIDOSIS [None]
  - LOSS OF CONSCIOUSNESS [None]
  - PYREXIA [None]
  - RASH [None]
  - THROMBOCYTOPENIA [None]
  - TYPE 1 DIABETES MELLITUS [None]
